FAERS Safety Report 7691208-0 (Version None)
Quarter: 2011Q3

REPORT INFORMATION
  Report Type: 
  Country: None (occurrence: None)
  Receive Date: 20110818
  Receipt Date: 20110808
  Transmission Date: 20111222
  Serious: Yes (Other)
  Sender: FDA-Public Use
  Company Number: US-JNJFOC-20110804375

PATIENT
  Sex: Female

DRUGS (1)
  1. REMICADE [Suspect]
     Indication: PUSTULAR PSORIASIS
     Route: 042
     Dates: start: 20101101, end: 20110516

REACTIONS (6)
  - SKIN EXFOLIATION [None]
  - HEPATIC FAILURE [None]
  - WHEELCHAIR USER [None]
  - DYSPNOEA [None]
  - ABASIA [None]
  - PUSTULAR PSORIASIS [None]
